FAERS Safety Report 23724156 (Version 1)
Quarter: 2024Q2

REPORT INFORMATION
  Report Type: Spontaneous
  Country: US (occurrence: None)
  Receive Date: 20240409
  Receipt Date: 20240409
  Transmission Date: 20240716
  Serious: Yes (Hospitalization, Other)
  Sender: FDA-Public Use
  Company Number: 2024A078538

PATIENT
  Sex: Male

DRUGS (1)
  1. BYDUREON BCISE [Suspect]
     Active Substance: EXENATIDE

REACTIONS (5)
  - Salivary gland enlargement [Not Recovered/Not Resolved]
  - Abscess of salivary gland [Unknown]
  - Infection [Unknown]
  - Viral infection [Unknown]
  - Product dose omission issue [Unknown]
